FAERS Safety Report 8780741 (Version 1)
Quarter: 2012Q4

REPORT INFORMATION
  Report Type: 
  Country: US (occurrence: US)
  Receive Date: 20120913
  Receipt Date: 20120913
  Transmission Date: 20130627
  Serious: Yes (Death)
  Sender: FDA-Public Use
  Company Number: US-ROCHE-1124088

PATIENT
  Age: 62 Year
  Sex: Male

DRUGS (5)
  1. TARCEVA [Suspect]
     Indication: GLIOBLASTOMA MULTIFORME
     Route: 048
     Dates: start: 20120522, end: 201208
  2. AVASTIN [Suspect]
     Indication: GLIOBLASTOMA MULTIFORME
     Route: 042
     Dates: start: 20120518, end: 201208
  3. VOTRIENT [Concomitant]
     Indication: GLIOBLASTOMA MULTIFORME
     Route: 048
     Dates: start: 20120521, end: 201208
  4. TEMODAR [Concomitant]
     Indication: GLIOBLASTOMA MULTIFORME
     Route: 048
     Dates: start: 20120518, end: 201208
  5. RAPAMUNE [Concomitant]
     Indication: GLIOBLASTOMA MULTIFORME
     Dosage: 1-2 mg
     Route: 065
     Dates: start: 20120523, end: 201208

REACTIONS (1)
  - Glioblastoma multiforme [Fatal]
